FAERS Safety Report 8163545-7 (Version None)
Quarter: 2012Q1

REPORT INFORMATION
  Report Type: 
  Country: None (occurrence: None)
  Receive Date: 20120103
  Receipt Date: 20111121
  Transmission Date: 20120608
  Serious: No
  Sender: FDA-Public Use
  Company Number: AE-2011-003839

PATIENT
  Age: 68 Year
  Sex: Female
  Weight: 70.3075 kg

DRUGS (8)
  1. INCIVEK [Suspect]
     Dosage: 2250 MG (750 MG, 1IN 8 HR),ORAL
     Route: 048
     Dates: start: 20111005
  2. LYRICA [Concomitant]
  3. PEGINTERFERON (PEGINTERFERON  ALFA-2A) [Concomitant]
  4. NOVOLOG INSULIN(INSULIN ASPART) [Concomitant]
  5. SINGULAIR [Concomitant]
  6. RIBAVIRIN [Concomitant]
  7. COUMADIN [Concomitant]
  8. DIGOXIN [Concomitant]

REACTIONS (1)
  - STOMATITIS [None]
